FAERS Safety Report 5064282-8 (Version None)
Quarter: 2006Q3

REPORT INFORMATION
  Report Type: 
  Country: None (occurrence: None)
  Receive Date: 20060725
  Receipt Date: 20060712
  Transmission Date: 20061208
  Serious: Yes (Life-Threatening, Hospitalization)
  Sender: FDA-Public Use
  Company Number: 2006BH011778

PATIENT
  Age: 65 Year
  Sex: Female

DRUGS (18)
  1. DEXAMETHASONE [Suspect]
     Indication: DRUG USE FOR UNKNOWN INDICATION
     Dosage: 10 MG; EVERY 2 WK; IV
     Route: 042
     Dates: start: 20060102, end: 20060428
  2. FLUOROURACIL [Suspect]
     Indication: PANCREATIC CARCINOMA
     Dosage: 320 MG/M 2; EVERY 2 WK; IV
     Route: 042
     Dates: start: 20060102, end: 20060428
  3. OXALIPLATIN [Suspect]
     Indication: PANCREATIC CARCINOMA
     Dosage: 125 MG; EVERY 2WK; IV
     Route: 042
     Dates: start: 20060102, end: 20060428
  4. LEUCOVORIN CALCIUM [Suspect]
     Indication: PANCREATIC CARCINOMA
     Dosage: 390 MG; EVERY 2  WK;  IV
     Route: 042
     Dates: start: 20060102, end: 20060428
  5. AVASTIN [Suspect]
     Indication: PANCREATIC CARCINOMA
     Dosage: 375 MG; EVERY 2 WK; IV
     Route: 042
     Dates: start: 20060102, end: 20060428
  6. PALONOSETRON HYDROCHLORIDE [Suspect]
     Indication: DRUG USE FOR UNKNOWN INDICATION
     Dosage: 0.25 MG; EVERY 2 WK; IV
     Route: 042
     Dates: start: 20060102, end: 20060428
  7. VICODIN [Concomitant]
  8. PANCREASE [Concomitant]
  9. CELEXA [Concomitant]
  10. COMPAZINE [Concomitant]
  11. ATIVAN [Concomitant]
  12. KYTRIL [Concomitant]
  13. HYDROCHLOROTHIAZIDE [Concomitant]
  14. COLACE [Concomitant]
  15. OXYCONTIN [Concomitant]
  16. PRTONIX (PANTOPRAZOLE SODIUM) [Concomitant]
  17. CARAFATE [Concomitant]
  18. AMLODIPINE BESYLATE [Concomitant]

REACTIONS (11)
  - ABDOMINAL PAIN [None]
  - AORTIC DISORDER [None]
  - AORTIC DISSECTION [None]
  - AORTIC THROMBOSIS [None]
  - BACK PAIN [None]
  - BLOOD PRESSURE INCREASED [None]
  - CHEST PAIN [None]
  - DYSPNOEA [None]
  - HAEMATEMESIS [None]
  - JEJUNAL ULCER [None]
  - VOMITING [None]
